FAERS Safety Report 8186548-5 (Version None)
Quarter: 2012Q1

REPORT INFORMATION
  Report Type: 
  Country: None (occurrence: None)
  Receive Date: 20120302
  Receipt Date: 20120302
  Transmission Date: 20120608
  Serious: Yes (Other)
  Sender: FDA-Public Use
  Company Number: None

PATIENT
  Sex: Female

DRUGS (2)
  1. RIBASPHERE [Suspect]
     Dosage: RIBASPHERE 200M 600MG BID PO
     Route: 048
  2. PEGASYS [Suspect]
     Dosage: PEGASYS 180MCG Q WEEKLY SC
     Route: 058
     Dates: start: 20110922, end: 20120228

REACTIONS (4)
  - NAUSEA [None]
  - CHOLECYSTITIS INFECTIVE [None]
  - RASH [None]
  - VOMITING [None]
